FAERS Safety Report 25627324 (Version 1)
Quarter: 2025Q3

REPORT INFORMATION
  Report Type: Spontaneous
  Country: US (occurrence: US)
  Receive Date: 20250731
  Receipt Date: 20250731
  Transmission Date: 20251020
  Serious: No
  Sender: CB FLEET
  Company Number: US-PRESTIGE-202504-US-001178

PATIENT
  Sex: Male

DRUGS (1)
  1. TAGAMET HB [Suspect]
     Active Substance: CIMETIDINE
     Indication: Product used for unknown indication
     Route: 048

REACTIONS (1)
  - Drug ineffective [Not Recovered/Not Resolved]
